FAERS Safety Report 16680853 (Version 2)
Quarter: 2019Q3

REPORT INFORMATION
  Report Type: Spontaneous
  Country: DE (occurrence: DE)
  Receive Date: 20190808
  Receipt Date: 20190828
  Transmission Date: 20191004
  Serious: Yes (Hospitalization, Other)
  Sender: FDA-Public Use
  Company Number: DE-SAMSUNG BIOEPIS-SB-2019-21726

PATIENT
  Age: 43 Year
  Sex: Male
  Weight: 92 kg

DRUGS (6)
  1. FLIXABI [Suspect]
     Active Substance: INFLIXIMAB
     Route: 065
     Dates: start: 20190613
  2. FLIXABI [Suspect]
     Active Substance: INFLIXIMAB
     Route: 065
     Dates: start: 20190424
  3. FLIXABI [Suspect]
     Active Substance: INFLIXIMAB
     Indication: PRODUCT USED FOR UNKNOWN INDICATION
     Route: 065
     Dates: start: 20190117
  4. FLIXABI [Suspect]
     Active Substance: INFLIXIMAB
     Route: 065
     Dates: start: 20190131
  5. FLIXABI [Suspect]
     Active Substance: INFLIXIMAB
     Route: 065
     Dates: start: 20190228
  6. FLIXABI [Suspect]
     Active Substance: INFLIXIMAB
     Route: 065
     Dates: start: 20190725

REACTIONS (4)
  - Infection [Recovering/Resolving]
  - Body temperature increased [Recovering/Resolving]
  - C-reactive protein increased [Recovering/Resolving]
  - Arthralgia [Recovering/Resolving]

NARRATIVE: CASE EVENT DATE: 20190715
